FAERS Safety Report 8200573-7 (Version None)
Quarter: 2012Q1

REPORT INFORMATION
  Report Type: 
  Country: None (occurrence: None)
  Receive Date: 20120305
  Receipt Date: 20120227
  Transmission Date: 20120608
  Serious: Yes (Other)
  Sender: FDA-Public Use
  Company Number: 2011028057

PATIENT
  Age: 55 Year
  Sex: Female
  Weight: 70.3075 kg

DRUGS (22)
  1. LISINOPRIL [Concomitant]
  2. HIZENTRA [Suspect]
     Indication: IMMUNODEFICIENCY COMMON VARIABLE
     Dosage: SEE IMAGE
     Route: 058
     Dates: start: 20110203
  3. HIZENTRA [Suspect]
     Indication: IMMUNODEFICIENCY COMMON VARIABLE
     Dosage: SEE IMAGE
     Route: 058
     Dates: start: 20120222, end: 20120222
  4. HIZENTRA [Suspect]
     Indication: IMMUNODEFICIENCY COMMON VARIABLE
     Dosage: SEE IMAGE
     Route: 058
     Dates: start: 20110203
  5. HIZENTRA [Suspect]
     Indication: IMMUNODEFICIENCY COMMON VARIABLE
     Dosage: SEE IMAGE
     Route: 058
     Dates: start: 20110304
  6. HIZENTRA [Suspect]
  7. MULTIVITAMIN (MULTIVITAMIN /00831701/) [Concomitant]
  8. CYMBALTA [Concomitant]
  9. ZYRTEC [Concomitant]
  10. FEXOFENADINE HCL [Concomitant]
  11. IBUPROFEN [Concomitant]
  12. ADVAIR DISKUS 100/50 [Concomitant]
  13. TYLENOL ES (PARACETAMOL) [Concomitant]
  14. SYNTHROID [Concomitant]
  15. XANAX [Concomitant]
  16. ALBUTEROL [Concomitant]
  17. HIZENTRA [Suspect]
  18. LISINOPRIL HCTZ (PRINZIDE /00977901/) [Concomitant]
  19. WELLBUTRIN [Concomitant]
  20. HIZENTRA [Suspect]
  21. PEPCID [Concomitant]
  22. BUSPIRONE HCL [Concomitant]

REACTIONS (2)
  - RASH [None]
  - RESPIRATORY TRACT INFECTION [None]
